FAERS Safety Report 4716735-7 (Version None)
Quarter: 2005Q3

REPORT INFORMATION
  Report Type: 
  Country: None (occurrence: None)
  Receive Date: 20050714
  Receipt Date: 20050613
  Transmission Date: 20060218
  Serious: No
  Sender: FDA-Public Use
  Company Number: 200511724BCC

PATIENT
  Age: 63 Year
  Sex: Male
  Weight: 88.4514 kg

DRUGS (1)
  1. ALEVE (CAPLET) [Suspect]
     Indication: ARTHRALGIA
     Dosage: 220 MG QD ORAL
     Route: 048
     Dates: start: 20050403, end: 20050414

REACTIONS (2)
  - EXTRASYSTOLES [None]
  - PALPITATIONS [None]
